FAERS Safety Report 4330267-X (Version None)
Quarter: 2004Q2

REPORT INFORMATION
  Report Type: 
  Country: None (occurrence: None)
  Receive Date: 20040401
  Receipt Date: 20040401
  Transmission Date: 20050107
  Serious: Yes (Death)
  Sender: FDA-Public Use
  Company Number: None

PATIENT
  Age: 80 Year
  Sex: Male
  Weight: 78.9259 kg

DRUGS (3)
  1. TAXOTERE [Suspect]
     Indication: GASTRIC CANCER
     Dosage: 57 MG D1 IV
     Route: 042
     Dates: start: 20040203
  2. CARBOPLATIN [Suspect]
     Dosage: 127 MG D1 IV
     Route: 042
     Dates: start: 20040203
  3. XELODA [Suspect]
     Dosage: 2500 MG PO X 10 DAYS
     Route: 048
     Dates: start: 20040203, end: 20040208

REACTIONS (1)
  - DISEASE PROGRESSION [None]
